FAERS Safety Report 6793969-1 (Version None)
Quarter: 2010Q2

REPORT INFORMATION
  Report Type: 
  Country: None (occurrence: None)
  Receive Date: 20100624
  Receipt Date: 20050610
  Transmission Date: 20101027
  Serious: No
  Sender: FDA-Public Use
  Company Number: US-PFIZER INC-23100268

PATIENT
  Sex: Male

DRUGS (16)
  1. ARGATROBAN [Suspect]
     Route: 042
     Dates: start: 20050608, end: 20050609
  2. REGLAN [Concomitant]
  3. RIFAMPIN [Concomitant]
  4. ASPIRIN [Concomitant]
  5. HALDOL [Concomitant]
  6. PROTONIX [Concomitant]
  7. REMERON [Concomitant]
  8. MULTI-VITAMINS [Concomitant]
  9. PROMETHAZINE [Concomitant]
  10. VANCOMYCIN [Concomitant]
  11. PREDNISONE [Concomitant]
  12. CARDIZEM [Concomitant]
  13. ALBUTEROL [Concomitant]
  14. ATROVENT [Concomitant]
  15. MORPHINE [Concomitant]
  16. DEXTROSE W/POTASSIUM CHLORIDE AND NACL [Concomitant]

REACTIONS (1)
  - SKIN DISCOLOURATION [None]
